FAERS Safety Report 21572945 (Version 1)
Quarter: 2022Q4

REPORT INFORMATION
  Report Type: Spontaneous
  Country: CH (occurrence: CH)
  Receive Date: 20221109
  Receipt Date: 20221109
  Transmission Date: 20230113
  Serious: Yes (Other)
  Sender: FDA-Public Use
  Company Number: CH-ELI_LILLY_AND_COMPANY-CH202209006127

PATIENT
  Age: 67 Year
  Sex: Female
  Weight: 55 kg

DRUGS (2)
  1. OLUMIANT [Suspect]
     Active Substance: BARICITINIB
     Indication: Rheumatic disorder
     Dosage: 4 MG, DAILY
     Route: 065
     Dates: start: 20220517
  2. OLUMIANT [Suspect]
     Active Substance: BARICITINIB
     Dosage: UNK UNK, QOD
     Route: 065

REACTIONS (3)
  - Spinal stenosis [Unknown]
  - Post procedural infection [Unknown]
  - Micturition urgency [Unknown]
